FAERS Safety Report 7099110-2 (Version None)
Quarter: 2010Q4

REPORT INFORMATION
  Report Type: 
  Country: None (occurrence: None)
  Receive Date: 20101112
  Receipt Date: 20101108
  Transmission Date: 20110411
  Serious: Yes (Hospitalization, Congenital Anomaly)
  Sender: FDA-Public Use
  Company Number: A0891918A

PATIENT
  Sex: Male

DRUGS (1)
  1. PAXIL [Suspect]
     Indication: DEPRESSION
     Dosage: 30MG PER DAY
     Dates: start: 20080301

REACTIONS (8)
  - ANAL ATRESIA [None]
  - DRUG EXPOSURE DURING PREGNANCY [None]
  - HEART DISEASE CONGENITAL [None]
  - RENAL APLASIA [None]
  - TALIPES [None]
  - TRUNCUS ARTERIOSUS PERSISTENT [None]
  - VACTERL SYNDROME [None]
  - VENTRICULAR SEPTAL DEFECT [None]
